FAERS Safety Report 7815697-3 (Version None)
Quarter: 2011Q4

REPORT INFORMATION
  Report Type: 
  Country: None (occurrence: None)
  Receive Date: 20111014
  Receipt Date: 20111007
  Transmission Date: 20120403
  Serious: Yes (Hospitalization, Other)
  Sender: FDA-Public Use
  Company Number: PHHY2010JP73993

PATIENT
  Age: 48 Year
  Sex: Male

DRUGS (11)
  1. AVASTIN [Concomitant]
     Indication: LARGE INTESTINE CARCINOMA
     Dosage: 500 MG, UNK
     Route: 042
     Dates: start: 20080928, end: 20101028
  2. WARFARIN SODIUM [Concomitant]
     Route: 048
  3. THROMBOMODULIN ALFA [Concomitant]
  4. OXALIPLATIN [Suspect]
     Indication: LARGE INTESTINE CARCINOMA
  5. BEVACIZUMAB [Concomitant]
     Indication: RECTAL CANCER
  6. ZOMETA [Suspect]
     Dosage: 4 MG, UNK
     Route: 041
     Dates: start: 20101005
  7. ZOMETA [Suspect]
     Indication: METASTASES TO BONE
     Dosage: 4 MG, UNK
     Route: 041
     Dates: start: 20100916
  8. ZOMETA [Suspect]
     Dosage: 4 MG, UNK
     Route: 041
     Dates: start: 20101028
  9. CAPECITABINE [Suspect]
     Indication: RECTAL CANCER
  10. XELODA [Concomitant]
     Dosage: 3.6 G, UNK
     Route: 048
     Dates: start: 20100209, end: 20101028
  11. RADIOTHERAPY [Concomitant]
     Indication: METASTASES TO BONE
     Dosage: 3 GY, 10 TIMES
     Dates: start: 20101117

REACTIONS (12)
  - HAEMOLYTIC ANAEMIA [None]
  - HAEMATOCHEZIA [None]
  - HAEMATURIA [None]
  - HAEMOGLOBINURIA [None]
  - RENAL FAILURE [None]
  - DISSEMINATED INTRAVASCULAR COAGULATION [None]
  - DRUG INTERACTION [None]
  - OLIGURIA [None]
  - BLOOD BILIRUBIN INCREASED [None]
  - BLOOD CREATININE INCREASED [None]
  - ENDOTHELIAL DYSFUNCTION [None]
  - RENAL IMPAIRMENT [None]
